FAERS Safety Report 14647443 (Version 2)
Quarter: 2018Q2

REPORT INFORMATION
  Report Type: Spontaneous
  Country: DE (occurrence: DE)
  Receive Date: 20180316
  Receipt Date: 20180412
  Transmission Date: 20180711
  Serious: No
  Sender: FDA-Public Use
  Company Number: DE-009507513-1802DEU003351

PATIENT
  Age: 35 Year
  Sex: Female
  Weight: 55 kg

DRUGS (1)
  1. NUVARING [Suspect]
     Active Substance: ETHINYL ESTRADIOL\ETONOGESTREL
     Indication: CONTRACEPTION
     Dosage: 1 RING, UNK
     Route: 067
     Dates: start: 20180125, end: 201802

REACTIONS (10)
  - Rash [Unknown]
  - Vulvovaginal dryness [Unknown]
  - Genital pain [Unknown]
  - Vaginal haemorrhage [Unknown]
  - Menstruation delayed [Recovered/Resolved]
  - Incorrect drug administration duration [Unknown]
  - Mood swings [Unknown]
  - Haemorrhoids [Unknown]
  - Loss of libido [Unknown]
  - Alopecia [Unknown]

NARRATIVE: CASE EVENT DATE: 201802
